FAERS Safety Report 25336222 (Version 4)
Quarter: 2025Q4

REPORT INFORMATION
  Report Type: Spontaneous
  Country: MX (occurrence: MX)
  Receive Date: 20250520
  Receipt Date: 20251118
  Transmission Date: 20260118
  Serious: Yes (Hospitalization, Other)
  Sender: NOVO NORDISK
  Company Number: MX-NOVOPROD-1429290

PATIENT
  Age: 2 Year
  Sex: Male
  Weight: 11.5 kg

DRUGS (3)
  1. NOVOEIGHT [Suspect]
     Active Substance: ANTIHEMOPHILIC FACTOR, HUMAN RECOMBINANT
     Indication: Factor VIII deficiency
     Dosage: 1000 IU, QOD
     Route: 042
     Dates: start: 202406, end: 20251001
  2. NOVOEIGHT [Suspect]
     Active Substance: ANTIHEMOPHILIC FACTOR, HUMAN RECOMBINANT
     Dosage: 1000 IU, TIW
     Route: 042
  3. NOVOEIGHT [Suspect]
     Active Substance: ANTIHEMOPHILIC FACTOR, HUMAN RECOMBINANT
     Dosage: UNK (RESUMED)
     Route: 042

REACTIONS (12)
  - Device related bacteraemia [Unknown]
  - Influenza [Recovered/Resolved]
  - Central venous catheter removal [Recovered/Resolved]
  - Pyrexia [Recovered/Resolved]
  - Haemarthrosis [Unknown]
  - Tremor [Unknown]
  - Diarrhoea [Recovered/Resolved]
  - Infusion related reaction [Recovered/Resolved]
  - Pyrexia [Recovered/Resolved]
  - Arthropathy [Recovered/Resolved]
  - Ligament sprain [Recovered/Resolved]
  - Gait disturbance [Not Recovered/Not Resolved]

NARRATIVE: CASE EVENT DATE: 20240801
